FAERS Safety Report 7398770-6 (Version None)
Quarter: 2011Q2

REPORT INFORMATION
  Report Type: 
  Country: None (occurrence: None)
  Receive Date: 20110401
  Receipt Date: 20110401
  Transmission Date: 20111010
  Serious: Yes (Life-Threatening, Hospitalization)
  Sender: FDA-Public Use
  Company Number: None

PATIENT
  Age: 84 Year
  Sex: Male
  Weight: 95 kg

DRUGS (2)
  1. HALOPERIDOL [Suspect]
     Indication: DEMENTIA
     Dosage: 1 MG ONCE IV
     Route: 042
     Dates: start: 20110208, end: 20110210
  2. HALOPERIDOL [Suspect]
     Indication: AGITATION
     Dosage: 1 MG ONCE IV
     Route: 042
     Dates: start: 20110208, end: 20110210

REACTIONS (5)
  - CONVULSION [None]
  - DYSTONIA [None]
  - MUSCLE TWITCHING [None]
  - MYOCLONUS [None]
  - TREMOR [None]
